FAERS Safety Report 4595217-X (Version None)
Quarter: 2005Q1

REPORT INFORMATION
  Report Type: 
  Country: None (occurrence: None)
  Receive Date: 20050224
  Receipt Date: 20050217
  Transmission Date: 20050727
  Serious: Yes (Other)
  Sender: FDA-Public Use
  Company Number: 2005033206

PATIENT
  Age: 20 Year
  Sex: Female
  Weight: 101.6057 kg

DRUGS (3)
  1. DEPO-PROVERA [Suspect]
     Indication: CONTRACEPTION
     Dosage: SEE IMAGE
     Route: 030
     Dates: start: 20040827, end: 20040827
  2. DEPO-PROVERA [Suspect]
     Indication: CONTRACEPTION
     Dosage: SEE IMAGE
     Route: 030
     Dates: start: 20041101, end: 20041101
  3. PAXIL [Concomitant]

REACTIONS (2)
  - INJECTION SITE SWELLING [None]
  - URTICARIA [None]
